FAERS Safety Report 16718818 (Version 1)
Quarter: 2019Q3

REPORT INFORMATION
  Report Type: Spontaneous
  Country: US (occurrence: US)
  Receive Date: 20190820
  Receipt Date: 20190820
  Transmission Date: 20191005
  Serious: No
  Sender: FDA-Public Use
  Company Number: US-BRISTOL-MYERS SQUIBB COMPANY-BMS-2019-081099

PATIENT
  Sex: Female
  Weight: 80.73 kg

DRUGS (1)
  1. ELIQUIS [Suspect]
     Active Substance: APIXABAN
     Indication: CEREBROVASCULAR ACCIDENT PROPHYLAXIS
     Dosage: 5 MILLIGRAM, BID
     Route: 048
     Dates: start: 201906

REACTIONS (6)
  - Nasopharyngitis [Unknown]
  - Respiratory tract congestion [Unknown]
  - Sinus headache [Unknown]
  - Bronchitis [Unknown]
  - Oropharyngeal pain [Unknown]
  - Cardiac disorder [Unknown]
